FAERS Safety Report 5701405-9 (Version None)
Quarter: 2008Q2

REPORT INFORMATION
  Report Type: 
  Country: None (occurrence: None)
  Receive Date: 20080407
  Receipt Date: 20080321
  Transmission Date: 20081010
  Serious: Yes (Other)
  Sender: FDA-Public Use
  Company Number: DSA_31666_2008

PATIENT
  Age: 68 Year
  Sex: Male

DRUGS (2)
  1. MONO-TILDIEM (MONO-TILDIEM - DILTIAZEM HYDROCHLORIDE ) 300 MG (NOT SPE [Suspect]
     Indication: DRUG USE FOR UNKNOWN INDICATION
     Dosage: (ORAL)
     Route: 048
     Dates: start: 20080314
  2. ZYLORIC /00003301/ [Concomitant]

REACTIONS (1)
  - MELAENA [None]
